FAERS Safety Report 8111976-3 (Version None)
Quarter: 2012Q1

REPORT INFORMATION
  Report Type: 
  Country: None (occurrence: None)
  Receive Date: 20120203
  Receipt Date: 20120120
  Transmission Date: 20120608
  Serious: Yes (Other)
  Sender: FDA-Public Use
  Company Number: US-RANBAXY-2011RR-50819

PATIENT
  Sex: Male

DRUGS (6)
  1. LEVAQUIN [Suspect]
     Indication: PROPHYLAXIS
     Dosage: 1 TABLET DAILY
     Route: 048
     Dates: start: 20070127
  2. LEVAQUIN [Suspect]
     Dosage: 500 MG, QD
     Route: 065
     Dates: start: 20100804
  3. PREDNISOLONE [Suspect]
     Indication: PRODUCT USED FOR UNKNOWN INDICATION
     Dosage: 10 MG/DAY
     Route: 065
  4. LEVAQUIN [Suspect]
     Indication: PROSTATITIS
     Dosage: UNK
     Route: 048
     Dates: start: 20100801
  5. CIPROFLOXACIN [Suspect]
     Indication: INFECTION
     Dosage: UNK
     Route: 065
     Dates: start: 20070101
  6. CIPROFLOXACIN [Suspect]
     Dosage: UNK
     Route: 065
     Dates: start: 20100101

REACTIONS (7)
  - TENDONITIS [None]
  - TENOSYNOVITIS [None]
  - TENDON DISORDER [None]
  - PLANTAR FASCIITIS [None]
  - MENISCUS LESION [None]
  - TENDON RUPTURE [None]
  - ROTATOR CUFF SYNDROME [None]
